FAERS Safety Report 10763994 (Version 3)
Quarter: 2015Q2

REPORT INFORMATION
  Report Type: Spontaneous
  Country: US (occurrence: US)
  Receive Date: 20150204
  Receipt Date: 20150617
  Transmission Date: 20150821
  Serious: No
  Sender: FDA-Public Use
  Company Number: US-GLAXOSMITHKLINE-US2014GSK049172

PATIENT
  Age: 59 Year
  Sex: Male

DRUGS (1)
  1. PROMACTA [Suspect]
     Active Substance: ELTROMBOPAG OLAMINE
     Indication: MYELOFIBROSIS
     Dosage: 75 MG, QD
     Route: 048
     Dates: start: 20140626

REACTIONS (1)
  - Adverse drug reaction [Unknown]
